FAERS Safety Report 23958491 (Version 1)
Quarter: 2024Q2

REPORT INFORMATION
  Report Type: Report from Study
  Country: US (occurrence: US)
  Receive Date: 20240610
  Receipt Date: 20240610
  Transmission Date: 20240716
  Serious: Yes (Hospitalization)
  Sender: FDA-Public Use
  Company Number: US-BAUSCH-BL-2024-007721

PATIENT
  Age: 36 Year
  Sex: Male

DRUGS (1)
  1. TARGRETIN [Suspect]
     Active Substance: BEXAROTENE
     Indication: Cutaneous T-cell lymphoma recurrent
     Route: 048

REACTIONS (4)
  - Cutaneous T-cell lymphoma refractory [Unknown]
  - Hospitalisation [Unknown]
  - Inability to afford medication [Unknown]
  - Insurance issue [Unknown]
